FAERS Safety Report 4727717-3 (Version None)
Quarter: 2005Q3

REPORT INFORMATION
  Report Type: 
  Country: None (occurrence: None)
  Receive Date: 20050725
  Receipt Date: 20050504
  Transmission Date: 20060218
  Serious: No
  Sender: FDA-Public Use
  Company Number: USA050597207

PATIENT
  Age: 38 Year
  Sex: Male

DRUGS (2)
  1. STRATTERA [Suspect]
     Indication: ATTENTION DEFICIT/HYPERACTIVITY DISORDER
     Dosage: 80 MG DAY
  2. EXCEDRIN (MIGRAINE) [Concomitant]

REACTIONS (2)
  - PANIC ATTACK [None]
  - PRURITUS [None]
